FAERS Safety Report 18464664 (Version 1)
Quarter: 2020Q4

REPORT INFORMATION
  Report Type: Spontaneous
  Country: BR (occurrence: BR)
  Receive Date: 20201104
  Receipt Date: 20201104
  Transmission Date: 20210114
  Serious: Yes (Other)
  Sender: FDA-Public Use
  Company Number: BR-ABBVIE-20P-020-3627944-00

PATIENT
  Sex: Male
  Weight: 32 kg

DRUGS (4)
  1. DEPAKENE [Suspect]
     Active Substance: VALPROIC ACID
     Dosage: RIGHT AFTER AUTISM DIAGNOSIS.ADMINISTERED FOR 6 OR 7 YEARS BEFORE TRYING OTHER MEDICATIONS
     Route: 048
  2. CANNABIDIOL [Concomitant]
     Active Substance: CANNABIDIOL
     Dosage: STARTED A YEAR AGO, TOGETHER WITH DEPAKENE; DOSE INCREASED BIT BY BIT
     Route: 048
     Dates: start: 2019
  3. DEPAKENE [Suspect]
     Active Substance: VALPROIC ACID
     Indication: EPILEPSY
     Dosage: MORNING/ AFTERNOON AND NIGHT; ONGOING (CONTINUOUS USE); DAILY DOSE: 33 ML
     Route: 048
     Dates: start: 2018
  4. CANNABIDIOL [Concomitant]
     Active Substance: CANNABIDIOL
     Indication: EPILEPSY
     Dosage: AT NIGHT; ONGOING (CONTINUOUS USE); DAILY DOSE: 26 DROPS
     Route: 048

REACTIONS (5)
  - Lower limb fracture [Unknown]
  - Wrong technique in product usage process [Unknown]
  - Keloid scar [Unknown]
  - Product use issue [Unknown]
  - Femur fracture [Unknown]
